FAERS Safety Report 25474592 (Version 1)
Quarter: 2025Q2

REPORT INFORMATION
  Report Type: Spontaneous
  Country: US (occurrence: US)
  Receive Date: 20250624
  Receipt Date: 20250624
  Transmission Date: 20250716
  Serious: No
  Sender: SANOFI AVENTIS
  Company Number: US-SA-2025SA177454

PATIENT
  Age: 21 Year
  Sex: Male
  Weight: 85 kg

DRUGS (17)
  1. DUPIXENT [Suspect]
     Active Substance: DUPILUMAB
     Indication: Dermatitis atopic
     Dosage: 300 MG, QOW
     Route: 058
  2. CLOBETASOL [Concomitant]
     Active Substance: CLOBETASOL
  3. HYDROCORTISONE [Concomitant]
     Active Substance: HYDROCORTISONE
  4. TRIAMCINOLONE ACETONIDE [Concomitant]
     Active Substance: TRIAMCINOLONE ACETONIDE
  5. IBUPROFEN [Concomitant]
     Active Substance: IBUPROFEN
  6. KETOTIFEN FUMARATE [Concomitant]
     Active Substance: KETOTIFEN FUMARATE
  7. HYOSCYAMINE SULFATE [Concomitant]
     Active Substance: HYOSCYAMINE SULFATE
  8. RISPERDAL [Concomitant]
     Active Substance: RISPERIDONE
  9. LORAZEPAM [Concomitant]
     Active Substance: LORAZEPAM
  10. ZYRTEC [Concomitant]
     Active Substance: CETIRIZINE HYDROCHLORIDE
  11. VITAMIN D3 [Concomitant]
     Active Substance: CHOLECALCIFEROL
  12. MAGNESIUM [Concomitant]
     Active Substance: MAGNESIUM
  13. ESOMEPRAZOLE MAGNESIUM [Concomitant]
     Active Substance: ESOMEPRAZOLE MAGNESIUM
  14. SAXENDA [Concomitant]
     Active Substance: LIRAGLUTIDE
  15. TOPIRAMATE [Concomitant]
     Active Substance: TOPIRAMATE
  16. GUANFACINE [Concomitant]
     Active Substance: GUANFACINE
  17. SERTRALINE HYDROCHLORIDE [Concomitant]
     Active Substance: SERTRALINE HYDROCHLORIDE

REACTIONS (7)
  - Sleep disorder due to a general medical condition [Not Recovered/Not Resolved]
  - Dermatitis atopic [Not Recovered/Not Resolved]
  - Product dose omission issue [Not Recovered/Not Resolved]
  - Pruritus [Not Recovered/Not Resolved]
  - Skin fissures [Not Recovered/Not Resolved]
  - Skin exfoliation [Not Recovered/Not Resolved]
  - Dry skin [Not Recovered/Not Resolved]

NARRATIVE: CASE EVENT DATE: 20250601
